FAERS Safety Report 26210852 (Version 1)
Quarter: 2025Q4

REPORT INFORMATION
  Report Type: Spontaneous
  Country: US (occurrence: US)
  Receive Date: 20251230
  Receipt Date: 20251230
  Transmission Date: 20260118
  Serious: No
  Sender: ROCHE
  Company Number: US-ROCHE-10000462639

PATIENT

DRUGS (3)
  1. GAZYVA [Suspect]
     Active Substance: OBINUTUZUMAB
     Indication: Product storage error
  2. PERJETA [Suspect]
     Active Substance: PERTUZUMAB
     Indication: Product storage error
  3. XOLAIR [Suspect]
     Active Substance: OMALIZUMAB
     Indication: Product storage error
     Dosage: VIAL

REACTIONS (2)
  - Product storage error [Unknown]
  - No adverse event [Unknown]
